FAERS Safety Report 8379818-9 (Version None)
Quarter: 2012Q2

REPORT INFORMATION
  Report Type: 
  Country: None (occurrence: None)
  Receive Date: 20120523
  Receipt Date: 20120509
  Transmission Date: 20120825
  Serious: Yes (Other)
  Sender: FDA-Public Use
  Company Number: US-BAYER-2012-046402

PATIENT
  Age: 84 Year
  Sex: Male
  Weight: 54 kg

DRUGS (2)
  1. PRILOSEC [Concomitant]
  2. ALKA-SELTZER ORIGINAL [Suspect]
     Indication: ABDOMINAL DISCOMFORT
     Dosage: 2 DF, ONCE
     Route: 048
     Dates: start: 20120501

REACTIONS (3)
  - CHEST PAIN [None]
  - FAECES DISCOLOURED [None]
  - NAUSEA [None]
